FAERS Safety Report 6915178-5 (Version None)
Quarter: 2010Q3

REPORT INFORMATION
  Report Type: 
  Country: None (occurrence: None)
  Receive Date: 20100809
  Receipt Date: 20100730
  Transmission Date: 20110219
  Serious: Yes (Death)
  Sender: FDA-Public Use
  Company Number: IT-MILLENNIUM PHARMACEUTICALS, INC.-2010-04140

PATIENT

DRUGS (1)
  1. VELCADE [Suspect]
     Indication: CRYOGLOBULINAEMIA
     Dosage: 1.3 MG/M2, CYCLIC
     Dates: start: 20090201, end: 20090501

REACTIONS (1)
  - AORTIC ANEURYSM RUPTURE [None]
